FAERS Safety Report 9601141 (Version 2)
Quarter: 2013Q4

REPORT INFORMATION
  Report Type: Spontaneous
  Country: US (occurrence: US)
  Receive Date: 20131004
  Receipt Date: 20131004
  Transmission Date: 20140711
  Serious: No
  Sender: FDA-Public Use
  Company Number: US-AMGEN-USASP2013037846

PATIENT
  Age: 57 Year
  Sex: Male
  Weight: 113.38 kg

DRUGS (5)
  1. ENBREL [Suspect]
     Indication: PSORIATIC ARTHROPATHY
     Dosage: 50 MG, QWK
     Route: 058
  2. ENBREL [Suspect]
     Indication: PSORIASIS
  3. ASPIRIN BUFFERED [Concomitant]
     Dosage: 324 MG, UNK
     Route: 048
  4. ALEVE [Concomitant]
     Dosage: 220 MG, UNK
     Route: 048
  5. EXCEDRIN MIGRAINE [Concomitant]
     Dosage: UNK
     Route: 048

REACTIONS (4)
  - Influenza like illness [Unknown]
  - Neuropathy peripheral [Recovered/Resolved]
  - Herpes zoster [Recovered/Resolved]
  - Paraesthesia [Recovered/Resolved]
